FAERS Safety Report 6173991-9 (Version None)
Quarter: 2009Q2

REPORT INFORMATION
  Report Type: 
  Country: None (occurrence: None)
  Receive Date: 20090430
  Receipt Date: 20080808
  Transmission Date: 20091009
  Serious: No
  Sender: FDA-Public Use
  Company Number: US-ASTRAZENECA-2004UW22592

PATIENT
  Age: 74 Year
  Sex: Male
  Weight: 77.1 kg

DRUGS (3)
  1. NEXIUM [Suspect]
     Indication: BARRETT'S OESOPHAGUS
     Route: 048
     Dates: start: 20041001
  2. PRILOSEC OTC [Suspect]
     Indication: BARRETT'S OESOPHAGUS
     Route: 048
  3. VITAMINS [Concomitant]

REACTIONS (4)
  - EXTRASYSTOLES [None]
  - FLATULENCE [None]
  - HEART RATE INCREASED [None]
  - THROAT IRRITATION [None]
